FAERS Safety Report 10956651 (Version 1)
Quarter: 2015Q1

REPORT INFORMATION
  Report Type: Spontaneous
  Country: US (occurrence: None)
  Receive Date: 20150226
  Receipt Date: 20150226
  Transmission Date: 20150721
  Serious: Yes (Hospitalization)
  Sender: FDA-Public Use
  Company Number: TPA2009A04210

PATIENT
  Age: 6 Decade
  Sex: Male

DRUGS (3)
  1. ACTOS [Suspect]
     Active Substance: PIOGLITAZONE HYDROCHLORIDE
     Indication: DIABETES MELLITUS
     Route: 048
  2. LEVEMIR [Concomitant]
     Active Substance: INSULIN DETEMIR
  3. ^MEAL TIME^ INSULIN (INSULIN) [Concomitant]

REACTIONS (2)
  - Myocardial infarction [None]
  - Oedema peripheral [None]
